FAERS Safety Report 9013507 (Version 1)
Quarter: 2013Q1

REPORT INFORMATION
  Report Type: Spontaneous
  Country: US (occurrence: US)
  Receive Date: 20130115
  Receipt Date: 20130115
  Transmission Date: 20140127
  Serious: Yes (Hospitalization)
  Sender: FDA-Public Use
  Company Number: US-BAYER-2013-003962

PATIENT
  Age: 24 Year
  Sex: Female
  Weight: 86.17 kg

DRUGS (14)
  1. YASMIN [Suspect]
  2. PREDNISONE [Concomitant]
     Dosage: 30 MG, DAILY
     Dates: start: 20060906
  3. METHOTREXATE [Concomitant]
     Dosage: 2.5 MG, WEEKLY
     Dates: start: 20060906
  4. PLAQUENIL [Concomitant]
     Dosage: 200 MG, BID
     Dates: start: 20060906
  5. FOLATE SODIUM [Concomitant]
     Dosage: 1 MG, DAILY
     Dates: start: 20060906
  6. ACIPHEX [Concomitant]
     Dosage: 20 TWO TIMES DAILY [AS WRITTEN]
     Dates: start: 20060906
  7. MECLIZINE [Concomitant]
     Dosage: UNK
     Dates: start: 20060906
  8. PERCOCET [Concomitant]
     Dosage: UNK
     Dates: start: 20060906
  9. NEURONTIN [Concomitant]
     Dosage: 100 MG, TID
     Dates: start: 20060906
  10. NAPROSYN [Concomitant]
     Dosage: UNK
     Dates: start: 20060818
  11. K DUR [Concomitant]
     Dosage: UNK
     Dates: start: 20060818
  12. MAGNESIUM OXIDE [Concomitant]
     Dosage: UNK
     Dates: start: 20060818
  13. IMMUNOGLOBULINS [Concomitant]
     Indication: DERMATOMYOSITIS
     Dosage: UNK
     Route: 042
     Dates: start: 20060815
  14. DILAUDID [Concomitant]
     Route: 042

REACTIONS (1)
  - Pulmonary embolism [None]
